FAERS Safety Report 13586875 (Version 1)
Quarter: 2017Q2

REPORT INFORMATION
  Report Type: Spontaneous
  Country: US (occurrence: US)
  Receive Date: 20170525
  Receipt Date: 20170525
  Transmission Date: 20170830
  Serious: Yes (Hospitalization)
  Sender: FDA-Public Use
  Company Number: None

PATIENT
  Age: 72 Year
  Sex: Male
  Weight: 88.5 kg

DRUGS (2)
  1. WARFARIN [Suspect]
     Active Substance: WARFARIN
     Indication: ATRIAL FIBRILLATION
     Dates: start: 20160603, end: 20170330
  2. WARFARIN [Suspect]
     Active Substance: WARFARIN
     Indication: DEEP VEIN THROMBOSIS
     Dates: start: 20160603, end: 20170330

REACTIONS (8)
  - Fall [None]
  - Cholangitis [None]
  - Balance disorder [None]
  - Deep vein thrombosis [None]
  - Joint injury [None]
  - Retroperitoneal haemorrhage [None]
  - Head injury [None]
  - Haemorrhage intracranial [None]

NARRATIVE: CASE EVENT DATE: 20170330
